FAERS Safety Report 5679641-X (Version None)
Quarter: 2008Q1

REPORT INFORMATION
  Report Type: 
  Country: None (occurrence: None)
  Receive Date: 20080321
  Receipt Date: 20080311
  Transmission Date: 20080703
  Serious: Yes (Life-Threatening, Other)
  Sender: FDA-Public Use
  Company Number: 2008AL001602

PATIENT
  Age: 74 Year
  Sex: Female

DRUGS (20)
  1. DIPYRIDAMOLE [Suspect]
     Indication: TRANSIENT ISCHAEMIC ATTACK
     Dosage: 200 MG; BID; PO
     Route: 048
     Dates: start: 20071231, end: 20080118
  2. ASCORBIC ACID [Concomitant]
  3. CEPHALEXIN [Concomitant]
  4. ARAVA [Concomitant]
  5. PLAVIX [Concomitant]
  6. FOLIC ACID [Concomitant]
  7. SALBUTAMOL [Concomitant]
  8. METHOTREXATE [Concomitant]
  9. FLUVASTATIN [Concomitant]
  10. METFORMIN HCL [Concomitant]
  11. FLUTICASONE PROPIONATE W/SALMETEROL XINAFOATE [Concomitant]
  12. RISEDRONATE SODIUM [Concomitant]
  13. TEMAZEPAM [Concomitant]
  14. PREDNISOLONE [Concomitant]
  15. GLYCERYL TRINITRATE [Concomitant]
  16. PANTOPRAZOLE SODIUM [Concomitant]
  17. METHYLPREDNISOLONE ACETATE [Concomitant]
  18. COMBIVENT [Concomitant]
  19. EFFEXOR [Concomitant]
  20. DURAGESIC-100 [Concomitant]

REACTIONS (4)
  - HAEMOGLOBIN DECREASED [None]
  - HAEMORRHAGE [None]
  - PLATELET COUNT DECREASED [None]
  - WHITE BLOOD CELL COUNT DECREASED [None]
